FAERS Safety Report 10779177 (Version 2)
Quarter: 2015Q1

REPORT INFORMATION
  Report Type: Spontaneous
  Country: FR (occurrence: FR)
  Receive Date: 20150210
  Receipt Date: 20150217
  Transmission Date: 20150721
  Serious: Yes (Death, Life-Threatening)
  Sender: FDA-Public Use
  Company Number: FR-JNJFOC-20150203316

PATIENT
  Age: 73 Year
  Sex: Male

DRUGS (6)
  1. XARELTO [Suspect]
     Active Substance: RIVAROXABAN
     Indication: CEREBROVASCULAR ACCIDENT PROPHYLAXIS
     Route: 048
  2. XARELTO [Suspect]
     Active Substance: RIVAROXABAN
     Indication: ATRIAL FIBRILLATION
     Route: 048
  3. TAMSULOSIN [Concomitant]
     Active Substance: TAMSULOSIN
     Route: 065
  4. PRAVASTATIN [Concomitant]
     Active Substance: PRAVASTATIN\PRAVASTATIN SODIUM
     Route: 065
  5. NEBIVOLOL [Concomitant]
     Active Substance: NEBIVOLOL
     Route: 065
  6. TRIATEC [Concomitant]
     Active Substance: RAMIPRIL
     Route: 065

REACTIONS (5)
  - Cerebral haematoma [Fatal]
  - Brain oedema [Fatal]
  - Drug level increased [Not Recovered/Not Resolved]
  - Intraventricular haemorrhage [Fatal]
  - Brain midline shift [Fatal]

NARRATIVE: CASE EVENT DATE: 20150120
